FAERS Safety Report 8419625-1 (Version None)
Quarter: 2012Q2

REPORT INFORMATION
  Report Type: 
  Country: None (occurrence: None)
  Receive Date: 20120607
  Receipt Date: 20120529
  Transmission Date: 20120825
  Serious: No
  Sender: FDA-Public Use
  Company Number: US-B.I. PHARMACEUTICALS,INC./RIDGEFIELD-2012-BP-12604BP

PATIENT
  Sex: Male

DRUGS (5)
  1. NITROGLYCERIN [Concomitant]
  2. SPIRIVA [Suspect]
     Indication: CHRONIC OBSTRUCTIVE PULMONARY DISEASE
     Dosage: 18 MCG
     Route: 055
     Dates: start: 20120521
  3. ASPIRIN [Concomitant]
     Route: 048
  4. CLONAZEPAM [Concomitant]
     Indication: ANXIETY
     Dosage: 4 MG
     Route: 048
  5. OXYCODONE HCL [Concomitant]
     Indication: BACK PAIN
     Route: 048

REACTIONS (1)
  - CHEST DISCOMFORT [None]
